FAERS Safety Report 17861760 (Version 2)
Quarter: 2020Q3

REPORT INFORMATION
  Report Type: Report from Study
  Country: FR (occurrence: FR)
  Receive Date: 20200604
  Receipt Date: 20200717
  Transmission Date: 20201103
  Serious: Yes (Hospitalization)
  Sender: FDA-Public Use
  Company Number: FR-AMGEN-FRACT2020085098

PATIENT
  Age: 70 Year
  Sex: Female
  Weight: 59 kg

DRUGS (13)
  1. IRINOTECAN [Suspect]
     Active Substance: IRINOTECAN
     Indication: ADENOCARCINOMA OF COLON
     Dosage: 195 MILLIGRAM
     Route: 042
     Dates: start: 20200323
  2. PANITUMUMAB [Suspect]
     Active Substance: PANITUMUMAB
     Indication: ADENOCARCINOMA OF COLON
     Dosage: 354 MILLIGRAM
     Route: 042
     Dates: start: 20200323
  3. LEVOTHYROX [Concomitant]
     Active Substance: LEVOTHYROXINE
     Dosage: 75 MICROGRAM, QD
  4. PANITUMUMAB [Suspect]
     Active Substance: PANITUMUMAB
     Dosage: 354 MILLIGRAM
     Route: 042
     Dates: start: 20200602
  5. 5?FU [FLUOROURACIL] [Suspect]
     Active Substance: FLUOROURACIL
     Dosage: 2934 MILLIGRAM
     Route: 042
     Dates: start: 20200512
  6. OXALIPLATIN. [Suspect]
     Active Substance: OXALIPLATIN
     Indication: ADENOCARCINOMA OF COLON
     Dosage: 98 MILLIGRAM
     Route: 042
     Dates: start: 20200323, end: 20200428
  7. ARROW ALPRAZOLAM [Concomitant]
     Dosage: 0.25 MILLIGRAM, TID
  8. 5?FU [FLUOROURACIL] [Suspect]
     Active Substance: FLUOROURACIL
     Indication: ADENOCARCINOMA OF COLON
     Dosage: 498 MILLIGRAM
     Route: 040
     Dates: start: 20200323, end: 20200410
  9. 5?FU [FLUOROURACIL] [Suspect]
     Active Substance: FLUOROURACIL
     Dosage: DOSE REDUCTION BY 25%
     Route: 065
     Dates: start: 20200602
  10. IRINOTECAN [Suspect]
     Active Substance: IRINOTECAN
     Dosage: 195 MILLIGRAM
     Route: 042
     Dates: start: 20200512
  11. EUPANTOL [Concomitant]
     Active Substance: PANTOPRAZOLE SODIUM
     Dosage: 40 MILLIGRAM, QD
  12. PANITUMUMAB [Suspect]
     Active Substance: PANITUMUMAB
     Dosage: 354 MILLIGRAM
     Route: 042
     Dates: start: 20200512
  13. 5?FU [FLUOROURACIL] [Suspect]
     Active Substance: FLUOROURACIL
     Dosage: 2934 MILLIGRAM
     Route: 042
     Dates: start: 20200323

REACTIONS (2)
  - Hypokalaemia [Recovered/Resolved]
  - Hyponatraemia [Recovered/Resolved]

NARRATIVE: CASE EVENT DATE: 20200523
